FAERS Safety Report 24705626 (Version 1)
Quarter: 2024Q4

REPORT INFORMATION
  Report Type: Spontaneous
  Country: US (occurrence: None)
  Receive Date: 20241205
  Receipt Date: 20241205
  Transmission Date: 20250114
  Serious: Yes (unspecified)
  Sender: Public
  Company Number: None

PATIENT
  Age: 61 Year
  Sex: Female

DRUGS (1)
  1. HUMIRA [Suspect]
     Active Substance: ADALIMUMAB
     Dosage: 40MG EVERY OTHER WEEK
     Dates: start: 20241113, end: 20241205

REACTIONS (7)
  - Injection site reaction [None]
  - Injection site erythema [None]
  - Injection site swelling [None]
  - Pruritus [None]
  - Nausea [None]
  - Headache [None]
  - Lethargy [None]
